FAERS Safety Report 9422681 (Version 1)
Quarter: 2013Q3

REPORT INFORMATION
  Report Type: Spontaneous
  Country: US (occurrence: None)
  Receive Date: 20130724
  Receipt Date: 20130724
  Transmission Date: 20140515
  Serious: Yes (Other)
  Sender: FDA-Public Use
  Company Number: 2013/146

PATIENT
  Age: 69 Year
  Sex: Female

DRUGS (2)
  1. ROPINIROLE [Suspect]
     Indication: RESTLESS LEGS SYNDROME
     Dosage: 0.5 MG QD, UNK
  2. CLONAZEPAM [Concomitant]

REACTIONS (17)
  - Drug withdrawal syndrome [None]
  - Impulse-control disorder [None]
  - Quality of life decreased [None]
  - Treatment noncompliance [None]
  - Self-medication [None]
  - Anxiety [None]
  - Agitation [None]
  - Irritability [None]
  - Dysphoria [None]
  - Crying [None]
  - Fatigue [None]
  - Hyperhidrosis [None]
  - Tremor [None]
  - Restless legs syndrome [None]
  - Condition aggravated [None]
  - Insomnia [None]
  - Periodic limb movement disorder [None]
